FAERS Safety Report 15350080 (Version 2)
Quarter: 2018Q4

REPORT INFORMATION
  Report Type: Spontaneous
  Country: IL (occurrence: IL)
  Receive Date: 20180904
  Receipt Date: 20180924
  Transmission Date: 20190204
  Serious: Yes (Other)
  Sender: FDA-Public Use
  Company Number: IL-BAXTER-2018BAX022418

PATIENT
  Age: 43 Year
  Sex: Female

DRUGS (2)
  1. NACL 0.9% INTRAVENOUS SOLUTION BP [Suspect]
     Active Substance: SODIUM CHLORIDE
     Indication: MEDICATION DILUTION
     Dosage: 0.9% SODIUM CHLORIDE INJECTION SOLUTION (SOL) COMPOUNDED WITH PENIBRIN 1 GRAM (G); ADMINISTERED VIA
     Route: 042
     Dates: start: 20180813, end: 20180815
  2. PENIBRIN 2 G [Suspect]
     Active Substance: AMPICILLIN SODIUM
     Indication: ABSCESS BACTERIAL
     Dosage: PENIBRIN 1 GRAM (G) POWDER (PWD) COMPOUNDED WITH 0.9%SODIUM CHLORIDE; ADMINISTERED VIA PICC LINE (ON
     Route: 042
     Dates: start: 20180813, end: 20180815

REACTIONS (8)
  - Heart rate increased [Recovered/Resolved]
  - Wound [Recovered/Resolved]
  - Pruritus [Recovered/Resolved]
  - Dizziness [Recovered/Resolved]
  - Burning sensation [Recovered/Resolved]
  - Alopecia [Recovered/Resolved]
  - Paraesthesia [Recovered/Resolved]
  - Nausea [Recovered/Resolved]

NARRATIVE: CASE EVENT DATE: 201808
